FAERS Safety Report 17024209 (Version 2)
Quarter: 2025Q3

REPORT INFORMATION
  Report Type: Spontaneous
  Country: US (occurrence: US)
  Receive Date: 20191113
  Receipt Date: 20250701
  Transmission Date: 20251020
  Serious: Yes (Life-Threatening, Hospitalization, Other)
  Sender: AUROBINDO
  Company Number: US-MLMSERVICE-20191025-2013338-1

PATIENT
  Age: 12 Year
  Sex: Male

DRUGS (2)
  1. VANCOMYCIN [Suspect]
     Active Substance: VANCOMYCIN
     Indication: Product used for unknown indication
     Route: 065
  2. CEFAZOLIN [Suspect]
     Active Substance: CEFAZOLIN
     Indication: Product used for unknown indication
     Route: 042

REACTIONS (4)
  - Toxic shock syndrome [Recovering/Resolving]
  - Acute generalised exanthematous pustulosis [Recovering/Resolving]
  - Renal failure [Recovering/Resolving]
  - Hypotension [Recovering/Resolving]
